FAERS Safety Report 6370032-5 (Version None)
Quarter: 2009Q3

REPORT INFORMATION
  Report Type: 
  Country: None (occurrence: None)
  Receive Date: 20090923
  Receipt Date: 20070403
  Transmission Date: 20100115
  Serious: Yes (Hospitalization)
  Sender: FDA-Public Use
  Company Number: US-ASTRAZENECA-2006UW05502

PATIENT
  Age: 339 Month
  Sex: Female
  Weight: 68 kg

DRUGS (16)
  1. SEROQUEL [Suspect]
     Indication: BIPOLAR DISORDER
     Route: 048
     Dates: start: 20040101
  2. SEROQUEL [Suspect]
     Dosage: 100MG -1000MG
     Route: 048
     Dates: start: 20050519
  3. ZYPREXA [Suspect]
     Indication: BIPOLAR DISORDER
     Dates: start: 20050101, end: 20050101
  4. ZYPREXA [Suspect]
     Dates: start: 19990207
  5. ATENOLOL [Concomitant]
     Route: 048
     Dates: start: 20031013
  6. BUSPAR [Concomitant]
     Indication: ANXIETY
     Dosage: 10MG-20MG, TWICE A DAY
     Dates: start: 20061207
  7. CRESTOR [Concomitant]
     Indication: HYPERLIPIDAEMIA
     Dates: start: 20070207
  8. GLUCOPHAGE [Concomitant]
     Dates: start: 20050125
  9. ELAVIL [Concomitant]
     Indication: MIGRAINE
     Dosage: 75MG, 3 TABLETS AT BEDTIME
     Route: 048
     Dates: start: 19990207
  10. XANAX [Concomitant]
     Dates: start: 20050512
  11. METOPROLOL TARTRATE [Concomitant]
     Indication: CHEST PAIN
     Route: 048
     Dates: start: 20050515
  12. LIPITOR [Concomitant]
     Indication: HYPERLIPIDAEMIA
     Dates: start: 20050512
  13. NIASPAN [Concomitant]
     Dates: start: 20050515
  14. CYMBALTA [Concomitant]
     Indication: DEPRESSION
     Dates: start: 20060426
  15. CYMBALTA [Concomitant]
     Indication: PAIN
     Dates: start: 20060426
  16. ZETIA [Concomitant]
     Dates: start: 20060719

REACTIONS (5)
  - CARDIAC DISORDER [None]
  - CHEST PAIN [None]
  - DIABETES MELLITUS [None]
  - MITRAL VALVE INCOMPETENCE [None]
  - TYPE 2 DIABETES MELLITUS [None]
